FAERS Safety Report 14770876 (Version 1)
Quarter: 2018Q2

REPORT INFORMATION
  Report Type: Spontaneous
  Country: IT (occurrence: IT)
  Receive Date: 20180417
  Receipt Date: 20180417
  Transmission Date: 20180711
  Serious: Yes (Other)
  Sender: FDA-Public Use
  Company Number: IT-GE HEALTHCARE LIFE SCIENCES-2018CSU001348

PATIENT

DRUGS (2)
  1. ADREVIEW [Suspect]
     Active Substance: IOBENGUANE I-123
     Indication: BLOOD CATECHOLAMINES ABNORMAL
     Dosage: UNK UNK, SINGLE
     Route: 065
     Dates: start: 20171130, end: 20171130
  2. EUTIROX [Concomitant]
     Active Substance: LEVOTHYROXINE SODIUM
     Indication: HYPOTHYROIDISM

REACTIONS (1)
  - Urine iodine increased [Not Recovered/Not Resolved]

NARRATIVE: CASE EVENT DATE: 20180320
